FAERS Safety Report 11425256 (Version 2)
Quarter: 2015Q3

REPORT INFORMATION
  Report Type: Spontaneous
  Country: US (occurrence: US)
  Receive Date: 20150821
  Receipt Date: 20150903
  Transmission Date: 20151125
  Serious: No
  Sender: FDA-Public Use
  Company Number: US-ELI_LILLY_AND_COMPANY-US201007006298

PATIENT
  Sex: Male

DRUGS (5)
  1. HUMULIN N [Suspect]
     Active Substance: INSULIN HUMAN
     Dates: start: 20100721, end: 20100721
  2. METFORMIN [Concomitant]
     Active Substance: METFORMIN HYDROCHLORIDE
     Dosage: 40 MG, UNK
  3. HUMALOG [Suspect]
     Active Substance: INSULIN LISPRO
     Indication: DIABETES MELLITUS
  4. LANTUS [Concomitant]
     Active Substance: INSULIN GLARGINE
  5. HUMALOG [Suspect]
     Active Substance: INSULIN LISPRO
     Dosage: 44 U, OTHER

REACTIONS (5)
  - Blood glucose increased [Unknown]
  - Wrong drug administered [Recovered/Resolved]
  - Wrong drug administered [Unknown]
  - Wrong drug administered [Recovered/Resolved]
  - Muscle spasms [Unknown]
